FAERS Safety Report 16359901 (Version 2)
Quarter: 2022Q1

REPORT INFORMATION
  Report Type: Report from Study
  Country: FR (occurrence: FR)
  Receive Date: 20190528
  Receipt Date: 20220322
  Transmission Date: 20220423
  Serious: Yes (Other)
  Sender: FDA-Public Use
  Company Number: FR-BRISTOL-MYERS SQUIBB COMPANY-BMS-2019-020915

PATIENT
  Age: 62 Year
  Sex: Male

DRUGS (2)
  1. NIVOLUMAB [Suspect]
     Active Substance: NIVOLUMAB
     Indication: Renal cell carcinoma
     Dosage: UNK
     Route: 065
  2. NIVOLUMAB\RELATLIMAB-RMBW [Suspect]
     Active Substance: NIVOLUMAB\RELATLIMAB-RMBW
     Indication: Renal cell carcinoma

REACTIONS (7)
  - Deep vein thrombosis [Not Recovered/Not Resolved]
  - Hypertension [Not Recovered/Not Resolved]
  - Gastrooesophageal reflux disease [Not Recovered/Not Resolved]
  - Tachycardia [Not Recovered/Not Resolved]
  - Flank pain [Not Recovered/Not Resolved]
  - Pleural effusion [Recovered/Resolved]
  - Dyspepsia [Not Recovered/Not Resolved]

NARRATIVE: CASE EVENT DATE: 20190102
